FAERS Safety Report 14335545 (Version 1)
Quarter: 2017Q4

REPORT INFORMATION
  Report Type: Spontaneous
  Country: US (occurrence: US)
  Receive Date: 20171229
  Receipt Date: 20171229
  Transmission Date: 20180321
  Serious: Yes (Life-Threatening, Hospitalization, Disabling)
  Sender: FDA-Public Use
  Company Number: US-ORCHID HEALTHCARE-2037983

PATIENT
  Sex: Male

DRUGS (5)
  1. TYLENOL [Suspect]
     Active Substance: ACETAMINOPHEN
     Route: 048
  2. OXYCONTIN [Suspect]
     Active Substance: OXYCODONE HYDROCHLORIDE
     Route: 048
  3. MORPHINE SULFATE. [Suspect]
     Active Substance: MORPHINE SULFATE
     Route: 048
  4. CEPHALEXIN. [Suspect]
     Active Substance: CEPHALEXIN
     Route: 048
  5. FENTANYL. [Suspect]
     Active Substance: FENTANYL
     Route: 062

REACTIONS (1)
  - Anaphylactic shock [Unknown]
